FAERS Safety Report 7080804-X (Version None)
Quarter: 2010Q4

REPORT INFORMATION
  Report Type: 
  Country: None (occurrence: None)
  Receive Date: 20101103
  Receipt Date: 20101027
  Transmission Date: 20110411
  Serious: Yes (Other)
  Sender: FDA-Public Use
  Company Number: US-SANOFI-AVENTIS-2010SA065883

PATIENT
  Age: 70 Year
  Sex: Female

DRUGS (2)
  1. OPTICLICK [Suspect]
     Indication: TYPE 2 DIABETES MELLITUS
     Dates: start: 20000101
  2. LANTUS [Suspect]
     Indication: TYPE 2 DIABETES MELLITUS
     Dosage: DOSE:15 UNIT(S)
     Route: 058
     Dates: start: 20000101

REACTIONS (7)
  - BLOOD GLUCOSE DECREASED [None]
  - BLOOD GLUCOSE INCREASED [None]
  - DEAFNESS [None]
  - DEVICE MALFUNCTION [None]
  - HEADACHE [None]
  - OVERDOSE [None]
  - PRODUCT QUALITY ISSUE [None]
